FAERS Safety Report 4842973-9 (Version None)
Quarter: 2005Q4

REPORT INFORMATION
  Report Type: 
  Country: None (occurrence: None)
  Receive Date: 20051130
  Receipt Date: 20051117
  Transmission Date: 20060501
  Serious: Yes (Life-Threatening, Hospitalization)
  Sender: FDA-Public Use
  Company Number: 200510IM000643

PATIENT
  Age: 43 Year
  Sex: Male

DRUGS (3)
  1. ADVAFERON                                  (A643_INTERFERON ALFACON-1) [Suspect]
     Indication: HEPATITIS C
     Dosage: SUBCUTANEOUS
     Route: 058
     Dates: start: 20031001
  2. PEGINTERFERON ALFA-2B [Concomitant]
  3. REBETOL [Concomitant]

REACTIONS (3)
  - AUTOIMMUNE DISORDER [None]
  - DIABETES MELLITUS INSULIN-DEPENDENT [None]
  - LABORATORY TEST ABNORMAL [None]
